FAERS Safety Report 9792060 (Version 1)
Quarter: 2014Q1

REPORT INFORMATION
  Report Type: Spontaneous
  Country: US (occurrence: US)
  Receive Date: 20140102
  Receipt Date: 20140102
  Transmission Date: 20141002
  Serious: No
  Sender: FDA-Public Use
  Company Number: US-TEVA-453336USA

PATIENT
  Sex: Female
  Weight: 67.65 kg

DRUGS (3)
  1. PROAIR HFA [Suspect]
     Indication: BRONCHITIS
  2. ANTIBIOTICS [Concomitant]
     Indication: COUGH
  3. CODEINE [Concomitant]
     Indication: COUGH

REACTIONS (1)
  - Cough [Unknown]
